FAERS Safety Report 19196554 (Version 1)
Quarter: 2021Q2

REPORT INFORMATION
  Report Type: Other
  Country: US (occurrence: US)
  Receive Date: 20210429
  Receipt Date: 20210429
  Transmission Date: 20210717
  Serious: Yes (Death)
  Sender: FDA-Public Use
  Company Number: US-ROCHE-2818204

PATIENT
  Age: 54 Year
  Sex: Male

DRUGS (4)
  1. TOCILIZUMAB. [Concomitant]
     Active Substance: TOCILIZUMAB
     Indication: PRODUCT USED FOR UNKNOWN INDICATION
     Route: 065
  2. OXYGEN. [Concomitant]
     Active Substance: OXYGEN
     Indication: PRODUCT USED FOR UNKNOWN INDICATION
  3. ALTEPLASE. [Suspect]
     Active Substance: ALTEPLASE
     Indication: PULMONARY EMBOLISM
     Route: 065
  4. AZITHROMYCIN ANHYDROUS. [Concomitant]
     Active Substance: AZITHROMYCIN ANHYDROUS
     Indication: PRODUCT USED FOR UNKNOWN INDICATION

REACTIONS (2)
  - Haemorrhage intracranial [Fatal]
  - Cardiac arrest [Fatal]
